FAERS Safety Report 7029431-0 (Version None)
Quarter: 2010Q4

REPORT INFORMATION
  Report Type: 
  Country: None (occurrence: None)
  Receive Date: 20101005
  Receipt Date: 20101001
  Transmission Date: 20110411
  Serious: Yes (Life-Threatening, Other)
  Sender: FDA-Public Use
  Company Number: PHFR2010GB03707

PATIENT
  Sex: Male

DRUGS (7)
  1. CLOZARIL [Suspect]
     Indication: SCHIZOPHRENIA
     Dosage: UNK
     Route: 048
     Dates: start: 20070416
  2. CLOZARIL [Suspect]
     Dosage: 500MG DAILY
     Route: 048
  3. LITHIUM CARBONATE [Suspect]
     Dosage: 1G DAILY
     Route: 048
     Dates: start: 19950101
  4. HYOSCINE [Concomitant]
     Dosage: 600MG DAILY
     Route: 060
  5. AMISULPRIDE [Concomitant]
     Dosage: 800MG DAILY
     Route: 048
  6. LACTULOSE [Concomitant]
     Dosage: 20ML DAILY
     Route: 048
  7. PROPRANOLOL [Concomitant]
     Indication: TACHYCARDIA
     Dosage: 80MG DAILY
     Route: 048

REACTIONS (6)
  - BLOOD THYROID STIMULATING HORMONE DECREASED [None]
  - FATIGUE [None]
  - HYPERHIDROSIS [None]
  - HYPERTHYROIDISM [None]
  - TACHYCARDIA [None]
  - THYROXINE FREE INCREASED [None]
